FAERS Safety Report 4571137-1 (Version None)
Quarter: 2005Q1

REPORT INFORMATION
  Report Type: 
  Country: None (occurrence: None)
  Receive Date: 20050202
  Receipt Date: 20050120
  Transmission Date: 20050727
  Serious: Yes (Hospitalization)
  Sender: FDA-Public Use
  Company Number: 2004071270

PATIENT
  Age: 64 Year
  Sex: Male
  Weight: 54 kg

DRUGS (4)
  1. NEURONTIN [Suspect]
     Indication: NEUROPATHIC PAIN
     Dosage: 900 MG (300 MG, 3 IN 1 D),
     Dates: start: 20040827, end: 20040909
  2. CODEINE PHOSPHATE AND ACETAMINOPHEN [Concomitant]
  3. MORPHINE SULFATE [Concomitant]
  4. CLONAZEPAM [Concomitant]

REACTIONS (6)
  - ANOREXIA [None]
  - FALL [None]
  - INSOMNIA [None]
  - NAUSEA [None]
  - VERTIGO [None]
  - VOMITING [None]
